FAERS Safety Report 6563505-3 (Version None)
Quarter: 2010Q1

REPORT INFORMATION
  Report Type: 
  Country: None (occurrence: None)
  Receive Date: 20100130
  Receipt Date: 20091210
  Transmission Date: 20100710
  Serious: No
  Sender: FDA-Public Use
  Company Number: US-ABBOTT-09P-163-0614471-00

PATIENT
  Sex: Female
  Weight: 79.45 kg

DRUGS (18)
  1. HUMIRA [Suspect]
     Indication: RHEUMATOID ARTHRITIS
     Route: 058
     Dates: start: 20090901
  2. PREVACID [Concomitant]
     Indication: GASTROOESOPHAGEAL REFLUX DISEASE
     Route: 048
  3. SPIRONOLACTONE [Concomitant]
     Indication: OEDEMA
     Route: 048
  4. LOVASTATIN [Concomitant]
     Indication: BLOOD CHOLESTEROL INCREASED
     Route: 048
  5. GABAPENTIN [Concomitant]
     Indication: NEUROPATHY PERIPHERAL
     Dosage: 600MG X3 + 900MG  QHS
     Route: 048
  6. GABAPENTIN [Concomitant]
     Indication: FIBROMYALGIA
  7. METHADONE [Concomitant]
     Indication: PAIN
     Route: 048
  8. TOPAMAX [Concomitant]
     Indication: MIGRAINE
     Dosage: 50MG X2 100MG X1
     Route: 048
  9. FOLIC ACID [Concomitant]
     Indication: VITAMIN SUPPLEMENTATION
     Route: 048
  10. VITAMIN B-12 [Concomitant]
     Indication: ANAEMIA
     Route: 030
  11. ALLERTECH [Concomitant]
     Indication: HYPERSENSITIVITY
     Route: 048
  12. ACTONEL [Concomitant]
     Indication: OSTEOPOROSIS
  13. CALCIUM [Concomitant]
     Indication: MINERAL SUPPLEMENTATION
  14. STOOL SOFTENER [Concomitant]
     Indication: CONSTIPATION
     Dosage: QHS
  15. TRAMADOL [Concomitant]
     Indication: PAIN
     Dosage: 37.5-325 EVERY 6 HOURS
     Route: 048
  16. HYDROCODONE [Concomitant]
     Indication: PAIN
     Route: 048
  17. LORAZEPAM [Concomitant]
     Indication: ANXIETY
     Dosage: 1/2-1 TABLET QD
     Route: 048
  18. MAXALT [Concomitant]
     Indication: MIGRAINE
     Route: 048

REACTIONS (3)
  - BRONCHITIS [None]
  - PULMONARY CONGESTION [None]
  - SKIN FISSURES [None]
